FAERS Safety Report 10179695 (Version 3)
Quarter: 2014Q2

REPORT INFORMATION
  Report Type: Spontaneous
  Country: US (occurrence: US)
  Receive Date: 20140519
  Receipt Date: 20140611
  Transmission Date: 20141212
  Serious: No
  Sender: FDA-Public Use
  Company Number: US-PFIZER INC-2014132471

PATIENT
  Age: 82 Year
  Sex: Female
  Weight: 58.96 kg

DRUGS (6)
  1. CALTRATE 600 + D SOFT CHEWS [Suspect]
     Indication: MINERAL SUPPLEMENTATION
     Dosage: UNK
  2. CALTRATE 600 + D PLUS MINERAL [Suspect]
  3. SERTRALINE HCL [Suspect]
     Indication: DEPRESSION
     Dosage: UNK
  4. LORAZEPAM [Suspect]
     Indication: INSOMNIA
     Dosage: UNK
  5. HYDROCHLOROTHIAZIDE/TRIAMTERENE [Suspect]
     Indication: HYPERTENSION
     Dosage: UNK
  6. FISH OIL [Suspect]
     Dosage: UNK
     Route: 048

REACTIONS (3)
  - Alopecia [Unknown]
  - Dysphagia [Unknown]
  - Product size issue [Unknown]
